FAERS Safety Report 21289746 (Version 1)
Quarter: 2022Q3

REPORT INFORMATION
  Report Type: Spontaneous
  Country: JP (occurrence: JP)
  Receive Date: 20220902
  Receipt Date: 20220902
  Transmission Date: 20221027
  Serious: Yes (Death, Other)
  Sender: FDA-Public Use
  Company Number: JP-CHUGAI-2022033661

PATIENT
  Age: 49 Year
  Sex: Female
  Weight: 45 kg

DRUGS (6)
  1. AVASTIN [Suspect]
     Active Substance: BEVACIZUMAB
     Indication: Ovarian clear cell carcinoma
     Dosage: 900 MILLIGRAM, QD
     Route: 041
     Dates: start: 20210408, end: 20210408
  2. AVASTIN [Suspect]
     Active Substance: BEVACIZUMAB
     Dosage: 900 MILLIGRAM, ONCE/4WEEKS
     Route: 041
     Dates: start: 20211021, end: 20211118
  3. PACLITAXEL [Concomitant]
     Active Substance: PACLITAXEL
     Indication: Ovarian clear cell carcinoma
     Dosage: 130 MILLIGRAM, ONCE/WEEK
     Route: 041
     Dates: start: 20211021, end: 20211104
  4. PACLITAXEL [Concomitant]
     Active Substance: PACLITAXEL
     Dosage: 130 MILLIGRAM, ONCE/2WEEKS
     Route: 041
     Dates: start: 20211118, end: 20211202
  5. GEMCITABINE HYDROCHLORIDE [Concomitant]
     Active Substance: GEMCITABINE HYDROCHLORIDE
     Indication: Ovarian clear cell carcinoma
     Dosage: 1300 MILLIGRAM, ONCE/WEEK
     Route: 041
     Dates: start: 20210408, end: 20210415
  6. GEMCITABINE HYDROCHLORIDE [Concomitant]
     Active Substance: GEMCITABINE HYDROCHLORIDE
     Dosage: 1300 MILLIGRAM
     Route: 041
     Dates: start: 20210506, end: 20211007

REACTIONS (6)
  - Female genital tract fistula [Fatal]
  - Urogenital fistula [Fatal]
  - Renal impairment [Unknown]
  - Platelet count decreased [Unknown]
  - Thrombophlebitis [Unknown]
  - Blood pressure increased [Unknown]

NARRATIVE: CASE EVENT DATE: 20211209
